FAERS Safety Report 5663175-2 (Version None)
Quarter: 2008Q1

REPORT INFORMATION
  Report Type: 
  Country: None (occurrence: None)
  Receive Date: 20080313
  Receipt Date: 20080128
  Transmission Date: 20080703
  Serious: Yes (Death)
  Sender: FDA-Public Use
  Company Number: US-TYCO HEALTHCARE/MALLINCKRODT-T200800284

PATIENT

DRUGS (8)
  1. PROPOXYPHENE HCL AND ACETAMINOPHEN [Suspect]
     Route: 048
  2. DIAZEPAM [Suspect]
     Route: 048
  3. ZYPREXA [Suspect]
     Route: 048
  4. VENLAFAXINE HCL [Suspect]
     Route: 048
  5. MIRTAZAPINE [Suspect]
     Route: 048
  6. CODEINE SUL TAB [Suspect]
     Route: 048
  7. GABAPENTIN [Suspect]
     Route: 048
  8. METOPROLOL TARTRATE [Suspect]
     Route: 048

REACTIONS (2)
  - CARDIO-RESPIRATORY ARREST [None]
  - DRUG ABUSE [None]
